FAERS Safety Report 5226833-X (Version None)
Quarter: 2007Q1

REPORT INFORMATION
  Report Type: 
  Country: None (occurrence: None)
  Receive Date: 20070130
  Receipt Date: 20070127
  Transmission Date: 20070707
  Serious: Yes (Hospitalization)
  Sender: FDA-Public Use
  Company Number: 232009

PATIENT
  Age: 73 Year
  Sex: Male
  Weight: 84 kg

DRUGS (4)
  1. AVASTIN [Suspect]
     Indication: HEPATIC NEOPLASM MALIGNANT
     Dosage: 840 MG, Q2W, INTRAVENOUS
     Route: 042
     Dates: start: 20060912
  2. PULMICORT [Concomitant]
  3. SILOMAT (CLOBUTINOL) [Concomitant]
  4. DOMPERIDONE [Concomitant]

REACTIONS (3)
  - CARDIAC DISORDER [None]
  - HYPERTENSION [None]
  - MASS [None]
